FAERS Safety Report 9559980 (Version 1)
Quarter: 2013Q3

REPORT INFORMATION
  Report Type: Spontaneous
  Country: US (occurrence: None)
  Receive Date: 20130906
  Receipt Date: 20130906
  Transmission Date: 20140515
  Serious: Yes (Hospitalization)
  Sender: FDA-Public Use
  Company Number: 163-POMAL-13063899

PATIENT
  Age: 80 Year
  Sex: Female
  Weight: 54.89 kg

DRUGS (3)
  1. POMALYST [Suspect]
     Indication: PLASMA CELL MYELOMA
     Route: 048
     Dates: start: 201303
  2. PROCRIT (ERYTHROPOIETIN) [Concomitant]
  3. AREDIA (PAMIDRONATE DISODIUM) [Concomitant]

REACTIONS (1)
  - Pneumonia [None]
